FAERS Safety Report 8023880-X (Version None)
Quarter: 2012Q1

REPORT INFORMATION
  Report Type: 
  Country: None (occurrence: None)
  Receive Date: 20120105
  Receipt Date: 20111230
  Transmission Date: 20120608
  Serious: No
  Sender: FDA-Public Use
  Company Number: US-PFIZER INC-2012000844

PATIENT
  Sex: Female

DRUGS (1)
  1. IBUPROFEN (ADVIL) [Suspect]

REACTIONS (4)
  - INCORRECT DOSE ADMINISTERED [None]
  - DIZZINESS [None]
  - NAUSEA [None]
  - AMNESIA [None]
